FAERS Safety Report 6738922-9 (Version None)
Quarter: 2010Q2

REPORT INFORMATION
  Report Type: 
  Country: None (occurrence: None)
  Receive Date: 20100524
  Receipt Date: 20100518
  Transmission Date: 20101027
  Serious: Yes (Hospitalization)
  Sender: FDA-Public Use
  Company Number: US-MERCK-1002USA00639

PATIENT
  Age: 65 Year
  Sex: Male

DRUGS (5)
  1. VYTORIN [Suspect]
     Indication: BLOOD CHOLESTEROL
     Route: 048
     Dates: start: 20091001, end: 20100126
  2. ASPIRIN [Concomitant]
     Route: 065
  3. PREVACID [Concomitant]
     Route: 065
  4. TOPROL-XL [Concomitant]
     Route: 065
  5. PRILOSEC [Concomitant]
     Route: 065

REACTIONS (5)
  - CARDIAC DISORDER [None]
  - GASTRIC DISORDER [None]
  - JOINT SWELLING [None]
  - MUSCULOSKELETAL STIFFNESS [None]
  - MYALGIA [None]
